FAERS Safety Report 5628348-3 (Version None)
Quarter: 2008Q1

REPORT INFORMATION
  Report Type: 
  Country: None (occurrence: None)
  Receive Date: 20080131
  Receipt Date: 20071115
  Transmission Date: 20080703
  Serious: No
  Sender: FDA-Public Use
  Company Number: 163-21880-07111154

PATIENT
  Age: 53 Year
  Sex: Female

DRUGS (2)
  1. REVLIMID [Suspect]
     Indication: MULTIPLE MYELOMA
     Dosage: 5 MG, QD X21 DAYS Q28D, ORAL; 15 MG, QD X21 DAYS Q28D, ORAL
     Route: 048
     Dates: start: 20070610, end: 20071031
  2. REVLIMID [Suspect]
     Indication: MULTIPLE MYELOMA
     Dosage: 5 MG, QD X21 DAYS Q28D, ORAL; 15 MG, QD X21 DAYS Q28D, ORAL
     Route: 048
     Dates: start: 20071117

REACTIONS (3)
  - GINGIVAL SWELLING [None]
  - GLOSSODYNIA [None]
  - RASH [None]
